FAERS Safety Report 10173956 (Version 1)
Quarter: 2014Q2

REPORT INFORMATION
  Report Type: Spontaneous
  Country: IN (occurrence: None)
  Receive Date: 20140513
  Receipt Date: 20140513
  Transmission Date: 20141212
  Serious: Yes (Other)
  Sender: FDA-Public Use
  Company Number: 2014P1003910

PATIENT
  Age: 75 Year
  Sex: Male

DRUGS (5)
  1. HYDROCORTISONE [Suspect]
     Indication: ALLERGY PROPHYLAXIS
     Route: 042
  2. ASPIRIN [Concomitant]
  3. CLOPIDOGREL [Concomitant]
  4. ATORVASTATIN [Concomitant]
  5. ENOXAPARIN [Concomitant]

REACTIONS (1)
  - Anaphylactic reaction [None]
